FAERS Safety Report 9033246 (Version 1)
Quarter: 2013Q1

REPORT INFORMATION
  Report Type: Spontaneous
  Country: US (occurrence: US)
  Receive Date: 20130128
  Receipt Date: 20130128
  Transmission Date: 20140127
  Serious: Yes (Death, Other)
  Sender: FDA-Public Use
  Company Number: PHHY2013US007244

PATIENT
  Age: 58 Year
  Sex: Female

DRUGS (5)
  1. DIGOXIN [Suspect]
  2. CLOPIDOGREL [Suspect]
  3. OMEPRAZOLE [Suspect]
  4. ACETYLSALICYLIC ACID W/ACETAMINO. /CAFFEINE [Suspect]
  5. DULOXETINE [Suspect]

REACTIONS (3)
  - Completed suicide [Fatal]
  - Cardioactive drug level increased [Unknown]
  - Analgesic drug level increased [Unknown]
